FAERS Safety Report 19918100 (Version 1)
Quarter: 2021Q4

REPORT INFORMATION
  Report Type: Spontaneous
  Country: CA (occurrence: CA)
  Receive Date: 20211005
  Receipt Date: 20211005
  Transmission Date: 20220303
  Serious: Yes (Other)
  Sender: FDA-Public Use
  Company Number: CA-TEVA-2021-CA-1961994

PATIENT
  Weight: 2 kg

DRUGS (1)
  1. TAMSULOSIN [Suspect]
     Active Substance: TAMSULOSIN
     Indication: Renal colic
     Dosage: .4 MILLIGRAM DAILY;
     Route: 064

REACTIONS (1)
  - Low birth weight baby [Unknown]
